FAERS Safety Report 14909720 (Version 2)
Quarter: 2018Q3

REPORT INFORMATION
  Report Type: Spontaneous
  Country: JP (occurrence: JP)
  Receive Date: 20180517
  Receipt Date: 20180719
  Transmission Date: 20181010
  Serious: Yes (Hospitalization, Other)
  Sender: FDA-Public Use
  Company Number: JP-GLAXOSMITHKLINE-JP2018JPN083765

PATIENT
  Age: 5 Decade
  Sex: Male

DRUGS (2)
  1. ABILIFY [Concomitant]
     Active Substance: ARIPIPRAZOLE
     Dosage: UNK
  2. LAMICTAL [Suspect]
     Active Substance: LAMOTRIGINE
     Indication: BIPOLAR DISORDER
     Dosage: UNK
     Route: 048
     Dates: start: 20180324

REACTIONS (5)
  - Eosinophil count increased [Recovering/Resolving]
  - Drug eruption [Recovering/Resolving]
  - Liver function test increased [Recovering/Resolving]
  - Pyrexia [Unknown]
  - Drug reaction with eosinophilia and systemic symptoms [Recovering/Resolving]
